FAERS Safety Report 18152500 (Version 1)
Quarter: 2020Q3

REPORT INFORMATION
  Report Type: Spontaneous
  Country: JP (occurrence: JP)
  Receive Date: 20200814
  Receipt Date: 20200814
  Transmission Date: 20201103
  Serious: Yes (Death, Hospitalization, Other)
  Sender: FDA-Public Use
  Company Number: JP-ASTRAZENECA-2020SF02245

PATIENT
  Age: 73 Year
  Sex: Male

DRUGS (1)
  1. IMFINZI [Suspect]
     Active Substance: DURVALUMAB
     Indication: NON-SMALL CELL LUNG CANCER
     Route: 041
     Dates: start: 20200604, end: 20200702

REACTIONS (6)
  - Headache [Unknown]
  - Decreased appetite [Unknown]
  - Haemoptysis [Unknown]
  - Radiation pneumonitis [Fatal]
  - Respiratory failure [Unknown]
  - Chest pain [Unknown]

NARRATIVE: CASE EVENT DATE: 20200711
